FAERS Safety Report 5458439-1 (Version None)
Quarter: 2007Q3

REPORT INFORMATION
  Report Type: 
  Country: None (occurrence: None)
  Receive Date: 20070813
  Receipt Date: 20070529
  Transmission Date: 20080115
  Serious: No
  Sender: FDA-Public Use
  Company Number: 20073599

PATIENT
  Sex: Female

DRUGS (1)
  1. LIORESAL INTRATHECAL INJECTION) 250 MCG/ML [Suspect]
     Indication: MUSCLE SPASTICITY
     Dosage: 21.02 MCG, DAILY, INTRATHECAL
     Route: 037

REACTIONS (1)
  - HYPOTONIA [None]
